FAERS Safety Report 5695631-5 (Version None)
Quarter: 2008Q2

REPORT INFORMATION
  Report Type: 
  Country: None (occurrence: None)
  Receive Date: 20080407
  Receipt Date: 20080401
  Transmission Date: 20081010
  Serious: Yes (Hospitalization)
  Sender: FDA-Public Use
  Company Number: JP-TEVA-168643USA

PATIENT
  Sex: Male

DRUGS (1)
  1. PIMOZIDE TABLETS [Suspect]
     Indication: AUTISM SPECTRUM DISORDER
     Route: 048
     Dates: start: 20080303, end: 20080303

REACTIONS (1)
  - DYSKINESIA [None]
